FAERS Safety Report 6562049-2 (Version None)
Quarter: 2010Q1

REPORT INFORMATION
  Report Type: 
  Country: None (occurrence: None)
  Receive Date: 20100130
  Receipt Date: 20091209
  Transmission Date: 20100710
  Serious: No
  Sender: FDA-Public Use
  Company Number: US-ABBOTT-09P-163-0601540-00

PATIENT
  Sex: Female
  Weight: 97.156 kg

DRUGS (1)
  1. HUMIRA [Suspect]
     Indication: CROHN'S DISEASE
     Dates: start: 20090701

REACTIONS (7)
  - ANAL ABSCESS [None]
  - JOINT DISLOCATION [None]
  - MASS [None]
  - NERVE COMPRESSION [None]
  - PARAESTHESIA [None]
  - PRURITUS [None]
  - SPLENOMEGALY [None]
